FAERS Safety Report 8974102 (Version 1)
Quarter: 2012Q4

REPORT INFORMATION
  Report Type: Spontaneous
  Country: US (occurrence: None)
  Receive Date: 20121217
  Receipt Date: 20121217
  Transmission Date: 20130627
  Serious: Yes (Other)
  Sender: FDA-Public Use
  Company Number: None

PATIENT
  Sex: Male
  Weight: 136.99 kg

DRUGS (1)
  1. ENOXAPARIN [Suspect]
     Indication: DVT PROPHYLAXIS
     Dosage: 40mg; Twice/day;057
     Dates: start: 20100526, end: 20100528

REACTIONS (2)
  - Pelvic venous thrombosis [None]
  - Belligerence [None]
